FAERS Safety Report 6394161-5 (Version None)
Quarter: 2009Q4

REPORT INFORMATION
  Report Type: 
  Country: None (occurrence: None)
  Receive Date: 20091008
  Receipt Date: 20090929
  Transmission Date: 20100525
  Serious: Yes (Other)
  Sender: FDA-Public Use
  Company Number: BR-ABBOTT-09P-020-0600464-00

PATIENT
  Sex: Female
  Weight: 54 kg

DRUGS (15)
  1. HUMIRA [Suspect]
     Indication: RHEUMATOID ARTHRITIS
     Route: 058
  2. CALCIUM CARBONATE [Concomitant]
     Indication: OSTEOPOROSIS
     Route: 048
     Dates: start: 19990101
  3. ALENDRONATE SODIUM [Concomitant]
     Indication: OSTEOPOROSIS
     Route: 048
     Dates: start: 19990101
  4. NAPROXEN [Concomitant]
     Indication: RHEUMATOID ARTHRITIS
     Route: 048
     Dates: start: 19910101
  5. PREDNISONE [Concomitant]
     Indication: RHEUMATOID ARTHRITIS
     Route: 048
     Dates: start: 19910101
  6. HYDROCHLOROTHIAZIDE [Concomitant]
     Indication: HYPERTENSION
     Route: 048
     Dates: start: 20040101
  7. FERROUS SULFATE TAB [Concomitant]
     Indication: ANAEMIA
     Dosage: PRN ANEMIA
     Route: 048
     Dates: start: 20050101
  8. FOLIC ACID [Concomitant]
     Indication: VITAMIN SUPPLEMENTATION
     Dosage: ONE IN TWO DAYS AS NEEDED
     Route: 048
     Dates: start: 20050101
  9. OMEPRAZOLE [Concomitant]
     Indication: GASTRIC DISORDER
     Route: 048
     Dates: start: 20010101
  10. AMITRIPTYLINE [Concomitant]
     Indication: RHEUMATOID ARTHRITIS
     Route: 048
     Dates: start: 19990101
  11. AMITRIPTYLINE [Concomitant]
     Indication: SLEEP DISORDER THERAPY
  12. CHLOROQUINE [Concomitant]
     Indication: RHEUMATOID ARTHRITIS
     Route: 048
     Dates: start: 19910101
  13. METHOTREXATE [Concomitant]
     Indication: RHEUMATOID ARTHRITIS
     Dosage: 0.8ML PER WEEK
     Route: 030
  14. TYLEX [Concomitant]
     Indication: PAIN
     Dosage: AS NEEDED
  15. TYLEX [Concomitant]
     Indication: SLEEP DISORDER THERAPY

REACTIONS (4)
  - ALOPECIA [None]
  - BONE EROSION [None]
  - HYPERSENSITIVITY [None]
  - PROSTHESIS IMPLANTATION [None]
